FAERS Safety Report 4458993-2 (Version None)
Quarter: 2004Q3

REPORT INFORMATION
  Report Type: 
  Country: None (occurrence: None)
  Receive Date: 20040923
  Receipt Date: 20040923
  Transmission Date: 20050211
  Serious: Yes (Other)
  Sender: FDA-Public Use
  Company Number: None

PATIENT
  Age: 57 Year
  Sex: Female
  Weight: 63.5036 kg

DRUGS (1)
  1. MIACALCIN [Suspect]
     Indication: OSTEOPOROSIS
     Dosage: 1 SPRAY BID INTO NOSTRIL
     Dates: start: 20040801, end: 20040901

REACTIONS (4)
  - LIP DRY [None]
  - PARAESTHESIA ORAL [None]
  - THERMAL BURN [None]
  - TONGUE DRY [None]
